FAERS Safety Report 14685688 (Version 2)
Quarter: 2018Q2

REPORT INFORMATION
  Report Type: Report from Study
  Country: DE (occurrence: DE)
  Receive Date: 20180327
  Receipt Date: 20180409
  Transmission Date: 20180711
  Serious: Yes (Life-Threatening, Hospitalization)
  Sender: FDA-Public Use
  Company Number: DE-JNJFOC-20180119013

PATIENT
  Age: 67 Year
  Sex: Male
  Weight: 67 kg

DRUGS (3)
  1. IBRUTINIB [Suspect]
     Active Substance: IBRUTINIB
     Indication: DIFFUSE LARGE B-CELL LYMPHOMA
     Route: 048
     Dates: start: 20170530, end: 20180201
  2. MAGNESIUM [Concomitant]
     Active Substance: MAGNESIUM
     Route: 065
     Dates: start: 20170626
  3. LIMPTAR [Concomitant]
     Active Substance: AMINOPHYLLINE\QUININE SULFATE
     Route: 065
     Dates: start: 20170705

REACTIONS (3)
  - Pancreatitis [Recovering/Resolving]
  - Haematoma [Recovered/Resolved]
  - Chronic lymphocytic leukaemia transformation [Unknown]

NARRATIVE: CASE EVENT DATE: 20180102
